FAERS Safety Report 10082052 (Version 4)
Quarter: 2015Q1

REPORT INFORMATION
  Report Type: Spontaneous
  Country: US (occurrence: None)
  Receive Date: 20140414
  Receipt Date: 20150311
  Transmission Date: 20150720
  Serious: Yes (Hospitalization, Disabling)
  Sender: FDA-Public Use
  Company Number: UTC-046761

PATIENT
  Age: 32 Year
  Sex: Female
  Weight: 64.4 kg

DRUGS (11)
  1. TYVASO [Suspect]
     Active Substance: TREPROSTINIL
     Indication: PULMONARY ARTERIAL HYPERTENSION
     Route: 055
     Dates: start: 20130613
  2. SPIRONOLACTONE(SPIRONOLACTONE) [Concomitant]
  3. FLOLAN(EPOPROSTENOL) [Concomitant]
  4. CETIRIZINE(CETIRIZINE)(TABLET) [Concomitant]
  5. TRUVADA(EMTRICITABINE W/TENOFOVIR)(TABLET) [Concomitant]
  6. WARFARIN(WARFARIN)(TABLET) [Concomitant]
  7. BERAPROST SODIUM [Suspect]
     Active Substance: BERAPROST SODIUM
     Indication: PULMONARY ARTERIAL HYPERTENSION
     Dosage: STUDY DRUG (VS PLACEBO), 120 UG, QD, ORAL
     Route: 048
     Dates: start: 20131210, end: 20140324
  8. FUROSEMIDE(FUROSEMIDE)(TABLET) [Concomitant]
  9. RITONAVIR(RITONAVIR)(TABLET) [Concomitant]
  10. TADALAFIL(TADALAFIL)(TABLET) [Concomitant]
  11. DEPO-PROVERA(MEDROXYPROGESTERONE ACETATE) [Concomitant]

REACTIONS (3)
  - Dyspnoea [None]
  - Pulmonary hypertension [None]
  - Activities of daily living impaired [None]

NARRATIVE: CASE EVENT DATE: 20140318
